FAERS Safety Report 10310213 (Version 1)
Quarter: 2014Q3

REPORT INFORMATION
  Report Type: Spontaneous
  Country: US (occurrence: US)
  Receive Date: 20140717
  Receipt Date: 20140717
  Transmission Date: 20150326
  Serious: Yes (Death, Hospitalization, Other)
  Sender: FDA-Public Use
  Company Number: US-ALEXION PHARMACEUTICALS INC.-A201402741

PATIENT

DRUGS (2)
  1. SOLIRIS [Suspect]
     Active Substance: ECULIZUMAB
     Indication: OFF LABEL USE
  2. SOLIRIS [Suspect]
     Active Substance: ECULIZUMAB
     Indication: MALIGNANT ATROPHIC PAPULOSIS
     Dosage: 900 MG, QW
     Route: 042

REACTIONS (10)
  - Abdominal pain [Unknown]
  - Enterococcus test positive [Unknown]
  - Colitis ischaemic [Unknown]
  - Off label use [Unknown]
  - Leukocytosis [Unknown]
  - Body temperature increased [Unknown]
  - Upper gastrointestinal haemorrhage [Fatal]
  - Shock [Fatal]
  - Hypotension [Fatal]
  - Skin lesion [Unknown]
